FAERS Safety Report 7259261-6 (Version None)
Quarter: 2011Q1

REPORT INFORMATION
  Report Type: 
  Country: None (occurrence: None)
  Receive Date: 20110129
  Receipt Date: 20100813
  Transmission Date: 20110831
  Serious: No
  Sender: FDA-Public Use
  Company Number: US-ABBOTT-10P-163-0664326-00

PATIENT
  Age: 52 Year
  Sex: Female

DRUGS (3)
  1. PROZAC [Concomitant]
     Indication: PRODUCT USED FOR UNKNOWN INDICATION
  2. HUMIRA [Suspect]
     Indication: PSORIATIC ARTHROPATHY
     Dates: start: 20100101
  3. ZANTAC [Concomitant]
     Indication: PRODUCT USED FOR UNKNOWN INDICATION

REACTIONS (6)
  - OROPHARYNGEAL PAIN [None]
  - SKIN EXFOLIATION [None]
  - URINARY TRACT INFECTION [None]
  - APHONIA [None]
  - PHARYNGITIS STREPTOCOCCAL [None]
  - ERYTHEMA [None]
